FAERS Safety Report 5420581-9 (Version None)
Quarter: 2007Q3

REPORT INFORMATION
  Report Type: 
  Country: None (occurrence: None)
  Receive Date: 20070821
  Receipt Date: 20070717
  Transmission Date: 20080115
  Serious: Yes (Hospitalization)
  Sender: FDA-Public Use
  Company Number: US-JNJFOC-20070701261

PATIENT
  Sex: Female
  Weight: 66.23 kg

DRUGS (1)
  1. ORTHO EVRA [Suspect]
     Indication: DRUG USE FOR UNKNOWN INDICATION
     Route: 062
     Dates: start: 20031101, end: 20040101

REACTIONS (3)
  - CONVULSION [None]
  - PNEUMONIA [None]
  - PULMONARY EMBOLISM [None]
